FAERS Safety Report 22651284 (Version 1)
Quarter: 2023Q2

REPORT INFORMATION
  Report Type: Spontaneous
  Country: US (occurrence: None)
  Receive Date: 20230627
  Receipt Date: 20230627
  Transmission Date: 20230721
  Serious: Yes (Other)
  Sender: FDA-Public Use
  Company Number: None

PATIENT
  Age: 41 Year
  Sex: Female
  Weight: 76.5 kg

DRUGS (1)
  1. QULIPTA [Suspect]
     Active Substance: ATOGEPANT
     Dosage: FREQUENCY : DAILY;?
     Route: 048
     Dates: start: 20230501

REACTIONS (1)
  - Pancreatic failure [None]

NARRATIVE: CASE EVENT DATE: 20230619
